FAERS Safety Report 7384445-6 (Version None)
Quarter: 2011Q1

REPORT INFORMATION
  Report Type: 
  Country: None (occurrence: None)
  Receive Date: 20110330
  Receipt Date: 20110323
  Transmission Date: 20110831
  Serious: Yes (Hospitalization)
  Sender: FDA-Public Use
  Company Number: GB-BRISTOL-MYERS SQUIBB COMPANY-15641921

PATIENT
  Age: 73 Year
  Sex: Female

DRUGS (3)
  1. CETUXIMAB [Suspect]
     Indication: COLORECTAL CANCER
     Dosage: MOST RECENT INFUSION ON 21APR2010,CETUXIMAB5MG/ML INFUSION
     Route: 042
     Dates: start: 20100407
  2. OXALIPLATIN [Suspect]
     Indication: COLORECTAL CANCER
     Dosage: MOST RECENT INFUSION ON 21APR10
     Route: 042
     Dates: start: 20100407
  3. FLUOROURACIL [Suspect]
     Indication: COLORECTAL CANCER
     Dosage: ALSO 3200 MG,INTRAVENOUS
     Route: 040
     Dates: start: 20100407

REACTIONS (1)
  - CEREBRAL ISCHAEMIA [None]
